FAERS Safety Report 19818497 (Version 2)
Quarter: 2021Q3

REPORT INFORMATION
  Report Type: Spontaneous
  Country: ZA (occurrence: ZA)
  Receive Date: 20210911
  Receipt Date: 20210929
  Transmission Date: 20211014
  Serious: Yes (Other)
  Sender: FDA-Public Use
  Company Number: NVSC2021ZA197406

PATIENT
  Age: 76 Year
  Sex: Female

DRUGS (2)
  1. RAFINLAR [Suspect]
     Active Substance: DABRAFENIB
     Indication: LUNG ADENOCARCINOMA
     Dosage: 150 MG, BID (CAPSULES)
     Route: 065
     Dates: start: 20210630
  2. MEKINIST [Suspect]
     Active Substance: TRAMETINIB DIMETHYL SULFOXIDE
     Indication: LUNG ADENOCARCINOMA
     Dosage: 2 MG, QD (TABLET)
     Route: 048
     Dates: start: 20210630, end: 20210826

REACTIONS (4)
  - Chorioretinopathy [Unknown]
  - Retinopathy [Recovering/Resolving]
  - Cataract [Unknown]
  - Macular thickening [Unknown]

NARRATIVE: CASE EVENT DATE: 202108
